FAERS Safety Report 18587130 (Version 4)
Quarter: 2021Q2

REPORT INFORMATION
  Report Type: Spontaneous
  Country: US (occurrence: US)
  Receive Date: 20201207
  Receipt Date: 20210601
  Transmission Date: 20210717
  Serious: No
  Sender: FDA-Public Use
  Company Number: US-PFIZER INC-2020480194

PATIENT
  Age: 79 Year
  Sex: Female

DRUGS (1)
  1. IBRANCE [Suspect]
     Active Substance: PALBOCICLIB
     Indication: BREAST CANCER FEMALE
     Dosage: 75 MG, CYCLIC (21 DAYS ON 7 DAYS OFF ON 28 DAY CYCLE)

REACTIONS (5)
  - Abdominal discomfort [Unknown]
  - Muscular weakness [Unknown]
  - Cough [Unknown]
  - Intentional dose omission [Unknown]
  - Blood count abnormal [Unknown]
